FAERS Safety Report 24013761 (Version 1)
Quarter: 2024Q2

REPORT INFORMATION
  Report Type: Spontaneous
  Country: US (occurrence: US)
  Receive Date: 20240626
  Receipt Date: 20240626
  Transmission Date: 20240716
  Serious: No
  Sender: FDA-Public Use
  Company Number: US-ALCON LABORATORIES-ALC2023US003066

PATIENT
  Sex: Female

DRUGS (1)
  1. PATADAY TWICE A DAY RELIEF [Suspect]
     Active Substance: OLOPATADINE HYDROCHLORIDE
     Indication: Hypersensitivity
     Dosage: 1 DROP EACH EYE, QD (ONCE A DAY)
     Route: 047

REACTIONS (1)
  - Erythema of eyelid [Recovered/Resolved]
